FAERS Safety Report 4575521-1 (Version None)
Quarter: 2005Q1

REPORT INFORMATION
  Report Type: 
  Country: None (occurrence: None)
  Receive Date: 20050128
  Receipt Date: 20050128
  Transmission Date: 20050727
  Serious: No
  Sender: FDA-Public Use
  Company Number: None

PATIENT
  Sex: Female
  Weight: 64.4108 kg

DRUGS (3)
  1. TRUVADA [Suspect]
     Indication: HIV INFECTION
     Dosage: 1 TAB  DAILY  ORAL
     Route: 048
     Dates: start: 20041021, end: 20041021
  2. LEVOTHYROXINE [Concomitant]
  3. VIRACEPT [Concomitant]

REACTIONS (5)
  - ERYTHEMA [None]
  - NAUSEA [None]
  - OEDEMA PERIPHERAL [None]
  - PAIN IN EXTREMITY [None]
  - VOMITING [None]
